FAERS Safety Report 5065180-6 (Version None)
Quarter: 2006Q3

REPORT INFORMATION
  Report Type: 
  Country: None (occurrence: None)
  Receive Date: 20060706
  Receipt Date: 20051006
  Transmission Date: 20061208
  Serious: Yes (Life-Threatening, Hospitalization, Other)
  Sender: FDA-Public Use
  Company Number: 21133

PATIENT
  Age: 78 Year
  Sex: Female
  Weight: 63.05 kg

DRUGS (1)
  1. MIDAZOLAM HCL [Suspect]
     Indication: SEDATION
     Dosage: 5MG IV
     Route: 042
     Dates: start: 20040812

REACTIONS (1)
  - HYPOTENSION [None]
